FAERS Safety Report 8260992-X (Version None)
Quarter: 2012Q2

REPORT INFORMATION
  Report Type: 
  Country: None (occurrence: None)
  Receive Date: 20120402
  Receipt Date: 20120316
  Transmission Date: 20120825
  Serious: Yes (Death)
  Sender: FDA-Public Use
  Company Number: 2012MA003828

PATIENT
  Age: 6 Month
  Sex: Female

DRUGS (5)
  1. POTASSIUM CHLORIDE [Suspect]
     Indication: ELECTROLYTE IMBALANCE
     Dosage: IV
     Route: 042
  2. MAGNESIUM SULFATE [Suspect]
     Indication: MAGNESIUM DEFICIENCY
     Dosage: IV
     Route: 042
  3. SODIUM GLYCEROPHOSPHATE (NO PREF. NAME) [Suspect]
     Indication: BLOOD PHOSPHORUS DECREASED
     Dosage: IV
     Route: 042
  4. SODIUM CHLORIDE 0.9% [Suspect]
     Indication: BLOOD SODIUM DECREASED
     Dosage: IV
     Route: 042
  5. CALCIUM CHLORIDE [Suspect]
     Indication: CALCIUM DEFICIENCY
     Dosage: IV
     Route: 042

REACTIONS (4)
  - DYSPNOEA [None]
  - UNRESPONSIVE TO STIMULI [None]
  - CARDIAC ARREST [None]
  - NO THERAPEUTIC RESPONSE [None]
